FAERS Safety Report 6822636-0 (Version None)
Quarter: 2010Q3

REPORT INFORMATION
  Report Type: 
  Country: None (occurrence: None)
  Receive Date: 20100708
  Receipt Date: 20100628
  Transmission Date: 20110219
  Serious: Yes (Other)
  Sender: FDA-Public Use
  Company Number: TZ-SANOFI-AVENTIS-2010SA037431

PATIENT
  Age: 31 Year
  Sex: Male
  Weight: 61 kg

DRUGS (6)
  1. RIFAMPICIN [Suspect]
     Indication: PULMONARY TUBERCULOSIS
     Route: 048
     Dates: start: 20100507
  2. PYRAZINAMIDE [Suspect]
     Indication: PULMONARY TUBERCULOSIS
     Dates: start: 20100507
  3. BLINDED THERAPY [Suspect]
     Indication: PULMONARY TUBERCULOSIS
     Route: 065
     Dates: start: 20100507
  4. BLINDED THERAPY [Suspect]
     Route: 065
     Dates: start: 20100507
  5. BLINDED THERAPY [Suspect]
     Route: 065
     Dates: start: 20100507
  6. PYRIDOXINE HCL [Concomitant]
     Indication: PROPHYLAXIS
     Route: 065
     Dates: start: 20100507

REACTIONS (3)
  - ARTHRALGIA [None]
  - ARTHROPATHY [None]
  - JOINT SWELLING [None]
